FAERS Safety Report 17555492 (Version 1)
Quarter: 2020Q1

REPORT INFORMATION
  Report Type: Report from Study
  Country: US (occurrence: US)
  Receive Date: 20200318
  Receipt Date: 20200318
  Transmission Date: 20200409
  Serious: Yes (Other)
  Sender: FDA-Public Use
  Company Number: US-BAYER-2020-019683

PATIENT
  Age: 49 Year
  Sex: Male

DRUGS (1)
  1. XOFIGO [Suspect]
     Active Substance: RADIUM RA-223 DICHLORIDE
     Indication: HORMONE-REFRACTORY PROSTATE CANCER
     Dosage: 174.30 ?CI, Q4WK
     Route: 042
     Dates: start: 20191101, end: 20191101

REACTIONS (3)
  - Blood count abnormal [Recovered/Resolved with Sequelae]
  - Blood count abnormal [Unknown]
  - Bone marrow myelogram abnormal [Recovered/Resolved with Sequelae]
